FAERS Safety Report 19858201 (Version 2)
Quarter: 2021Q3

REPORT INFORMATION
  Report Type: Other
  Country: US (occurrence: US)
  Receive Date: 20210921
  Receipt Date: 20210928
  Transmission Date: 20211014
  Serious: No
  Sender: FDA-Public Use
  Company Number: US-ROCHE-2909255

PATIENT
  Sex: Female

DRUGS (5)
  1. PULMOZYME [Suspect]
     Active Substance: DORNASE ALFA
     Indication: LUNG DISORDER
  2. PULMOZYME [Suspect]
     Active Substance: DORNASE ALFA
     Indication: PULMONARY HYPOPLASIA
  3. PULMOZYME [Suspect]
     Active Substance: DORNASE ALFA
     Indication: DYSPLASIA
  4. PULMOZYME [Suspect]
     Active Substance: DORNASE ALFA
     Indication: HYPERSENSITIVITY PNEUMONITIS
     Dosage: NEBULIZE THE CONTENTS OF 1 VIAL(S) TWICE A DAY?VIAL
     Route: 065
  5. PULMOZYME [Suspect]
     Active Substance: DORNASE ALFA
     Indication: LUNG DISORDER

REACTIONS (2)
  - No adverse event [Unknown]
  - Off label use [Unknown]
